FAERS Safety Report 7885232 (Version 2)
Quarter: 2019Q1

REPORT INFORMATION
  Report Type: Spontaneous
  Country: GB (occurrence: GB)
  Receive Date: 20110405
  Receipt Date: 20190221
  Transmission Date: 20190418
  Serious: Yes (Other)
  Sender: FDA-Public Use
  Company Number: GB-PFIZER INC-2011072526

PATIENT
  Age: 38 Year
  Sex: Male

DRUGS (1)
  1. CHAMPIX [Suspect]
     Active Substance: VARENICLINE TARTRATE
     Dosage: 0.5 AND 1MG
     Route: 048
     Dates: start: 20110310, end: 20110317

REACTIONS (2)
  - Depression [Unknown]
  - Self-injurious ideation [Recovered/Resolved]

NARRATIVE: CASE EVENT DATE: 201103
